FAERS Safety Report 22759028 (Version 2)
Quarter: 2024Q1

REPORT INFORMATION
  Report Type: Report from Study
  Country: US (occurrence: US)
  Receive Date: 20230728
  Receipt Date: 20240110
  Transmission Date: 20240410
  Serious: Yes (Other)
  Sender: FDA-Public Use
  Company Number: US-JAZZ PHARMACEUTICALS-2023-US-004709

PATIENT
  Age: 68 Year
  Sex: Female

DRUGS (2)
  1. EPIDIOLEX [Suspect]
     Active Substance: CANNABIDIOL
     Indication: Partial seizures
     Dosage: 2 MILLILITER, QD
     Route: 048
     Dates: start: 20211101
  2. EPIDIOLEX [Suspect]
     Active Substance: CANNABIDIOL
     Dosage: 2 MILLILITER, BID
     Route: 048

REACTIONS (7)
  - Brain operation [Recovered/Resolved]
  - Memory impairment [Unknown]
  - Insomnia [Unknown]
  - Fear [Unknown]
  - Off label use [Unknown]
  - Product administration interrupted [Unknown]
  - Product dose omission issue [Recovering/Resolving]

NARRATIVE: CASE EVENT DATE: 20230227
